FAERS Safety Report 4685514-1 (Version None)
Quarter: 2005Q2

REPORT INFORMATION
  Report Type: 
  Country: None (occurrence: None)
  Receive Date: 20050608
  Receipt Date: 20050603
  Transmission Date: 20051028
  Serious: Yes (Death)
  Sender: FDA-Public Use
  Company Number: PHBS2005BR07964

PATIENT
  Age: 79 Year
  Sex: Male

DRUGS (1)
  1. FORASEQ [Suspect]
     Dosage: UNK, BID
     Dates: start: 20010101

REACTIONS (3)
  - EMPHYSEMA [None]
  - HYPERTROPHIC CARDIOMYOPATHY [None]
  - PULMONARY OEDEMA [None]
